FAERS Safety Report 4836138-4 (Version None)
Quarter: 2005Q4

REPORT INFORMATION
  Report Type: 
  Country: None (occurrence: None)
  Receive Date: 20051123
  Receipt Date: 20051114
  Transmission Date: 20060501
  Serious: Yes (Hospitalization)
  Sender: FDA-Public Use
  Company Number: US-KINGPHARMUSA00001-K200501479

PATIENT
  Age: 54 Year
  Sex: Male

DRUGS (2)
  1. SONATA [Suspect]
     Dosage: 50 MG, (10 CAPSULES)
     Route: 048
     Dates: start: 20051109, end: 20051109
  2. ALCOHOL [Suspect]
     Route: 048
     Dates: start: 20051109, end: 20051109

REACTIONS (4)
  - AGGRESSION [None]
  - INTENTIONAL OVERDOSE [None]
  - SOMNOLENCE [None]
  - SUICIDE ATTEMPT [None]
